FAERS Safety Report 6979706-6 (Version None)
Quarter: 2010Q3

REPORT INFORMATION
  Report Type: 
  Country: None (occurrence: None)
  Receive Date: 20100913
  Receipt Date: 20100903
  Transmission Date: 20110219
  Serious: Yes (Other)
  Sender: FDA-Public Use
  Company Number: DE-ABBOTT-10P-062-0649466-00

PATIENT
  Sex: Female
  Weight: 100 kg

DRUGS (7)
  1. HUMIRA [Suspect]
     Indication: ANKYLOSING SPONDYLITIS
     Route: 058
     Dates: start: 20091101, end: 20100531
  2. METHOTREXATE SODIUM [Concomitant]
     Indication: ANKYLOSING SPONDYLITIS
     Dates: start: 20080101
  3. DICLOFENAC [Concomitant]
     Indication: ANKYLOSING SPONDYLITIS
     Dates: start: 20070701
  4. THYROXIN [Concomitant]
     Indication: HORMONE REPLACEMENT THERAPY
     Route: 048
     Dates: start: 20100329
  5. THYROXIN [Concomitant]
     Route: 048
  6. THYROXIN [Concomitant]
     Route: 048
     Dates: start: 20100501
  7. THYBON [Concomitant]
     Indication: THYROID DISORDER
     Dates: start: 20100301, end: 20100401

REACTIONS (4)
  - FLUSHING [None]
  - HYPERHIDROSIS [None]
  - TACHYCARDIA [None]
  - THYROID CANCER [None]
